FAERS Safety Report 10426586 (Version 2)
Quarter: 2014Q3

REPORT INFORMATION
  Report Type: Spontaneous
  Country: FR (occurrence: FR)
  Receive Date: 20140903
  Receipt Date: 20140930
  Transmission Date: 20150326
  Serious: Yes (Other)
  Sender: FDA-Public Use
  Company Number: FR-JNJFOC-20140819867

PATIENT
  Age: 46 Year
  Sex: Male

DRUGS (1)
  1. XEPLION [Suspect]
     Active Substance: PALIPERIDONE PALMITATE
     Indication: PRODUCT USED FOR UNKNOWN INDICATION
     Route: 030
     Dates: start: 201309, end: 20140630

REACTIONS (4)
  - Micturition disorder [Recovered/Resolved]
  - Lack of spontaneous speech [Unknown]
  - Paraesthesia [Unknown]
  - Ejaculation disorder [Recovered/Resolved]

NARRATIVE: CASE EVENT DATE: 201401
